FAERS Safety Report 4849588-7 (Version None)
Quarter: 2005Q4

REPORT INFORMATION
  Report Type: 
  Country: None (occurrence: None)
  Receive Date: 20051207
  Receipt Date: 20050804
  Transmission Date: 20060501
  Serious: Yes (Death, Hospitalization)
  Sender: FDA-Public Use
  Company Number: 2005037382

PATIENT
  Age: 76 Year
  Sex: Female

DRUGS (20)
  1. PREDNISONE [Suspect]
     Indication: ILL-DEFINED DISORDER
     Dosage: 20 MG (INTERVAL:  EVERY DA), ORAL
     Route: 048
     Dates: start: 20040831
  2. DOXORUBICIN HCL [Suspect]
     Indication: MULTIPLE MYELOMA
     Dosage: 30 MG (30 MG, 1 IN 1 D), INTRAVENOUS
     Route: 042
     Dates: start: 20040901, end: 20040901
  3. MORPHINE [Suspect]
     Indication: ILL-DEFINED DISORDER
     Dosage: 5 MG (5 MG, 1 IN 1 D), ORAL
     Route: 048
     Dates: start: 20040830, end: 20040910
  4. DEXAMETHASONE [Suspect]
     Indication: MULTIPLE MYELOMA
     Dosage: 40 MG (1 IN 1 D), ORAL
     Route: 048
     Dates: start: 20040901, end: 20040912
  5. THALIDOMIDE (THALIDOMIDE) [Suspect]
     Indication: MULTIPLE MYELOMA
     Dosage: SEE IMAGE
     Route: 048
     Dates: start: 20040830, end: 20040902
  6. THALIDOMIDE (THALIDOMIDE) [Suspect]
     Indication: MULTIPLE MYELOMA
     Dosage: SEE IMAGE
     Route: 048
     Dates: start: 20040903, end: 20040903
  7. ACENOCOUMAROL (ACENOCOUMAROL) [Suspect]
     Indication: ILL-DEFINED DISORDER
     Dosage: SEE IMAGE
     Route: 048
     Dates: start: 20040904, end: 20040906
  8. ACENOCOUMAROL (ACENOCOUMAROL) [Suspect]
     Indication: ILL-DEFINED DISORDER
     Dosage: SEE IMAGE
     Route: 048
     Dates: start: 20040909, end: 20040909
  9. LEVOTHYROXINE SODIUM [Concomitant]
  10. EFFEXOR [Concomitant]
  11. TEMESTA (LORAZEPAM) [Concomitant]
  12. POTASSIUM CHLORIDE [Concomitant]
  13. SPECIAFOLDINE (FOLIC ACID) [Concomitant]
  14. RABEPRAZOLE SODIUM [Concomitant]
  15. MAGNE-B6 (MAGNESIUM LACTATE, PYRIDOXINE HYDROCHLORIDE) [Concomitant]
  16. ZOMETA [Concomitant]
  17. PRIMPERAN TAB [Concomitant]
  18. MORPHINE SULFATE [Concomitant]
  19. DURAGESIC-100 [Concomitant]
  20. FUROSEMIDE [Concomitant]

REACTIONS (7)
  - ANAEMIA [None]
  - CARDIAC ARREST [None]
  - GENERAL PHYSICAL HEALTH DETERIORATION [None]
  - LUNG DISORDER [None]
  - NEUTROPENIA [None]
  - PSEUDOMONAS INFECTION [None]
  - RESPIRATORY ARREST [None]
